FAERS Safety Report 9269510 (Version 1)
Quarter: 2013Q2

REPORT INFORMATION
  Report Type: Spontaneous
  Country: US (occurrence: US)
  Receive Date: 20130503
  Receipt Date: 20130503
  Transmission Date: 20140414
  Serious: Yes (Hospitalization)
  Sender: FDA-Public Use
  Company Number: US-BAYER-2013-053157

PATIENT
  Age: 49 Year
  Sex: Female

DRUGS (38)
  1. YAZ [Suspect]
     Indication: MENSTRUAL CYCLE MANAGEMENT
  2. YASMIN [Suspect]
  3. SYNTHROID [Concomitant]
     Dosage: UNK
     Dates: start: 20080929
  4. SYNTHROID [Concomitant]
     Dosage: UNK
     Dates: start: 20081128
  5. METFORMIN [Concomitant]
     Dosage: UNK
     Dates: start: 20081128
  6. ALTACE [Concomitant]
     Dosage: UNK
     Dates: start: 20080929
  7. ALTACE [Concomitant]
     Dosage: UNK
     Dates: start: 20081127
  8. ZOLOFT [Concomitant]
     Dosage: UNK
     Dates: start: 20080929
  9. ZOLOFT [Concomitant]
     Dosage: UNK
     Dates: start: 20081127
  10. IRON [Concomitant]
     Dosage: UNK
     Dates: start: 20080929
  11. IRON [Concomitant]
     Dosage: UNK
     Dates: start: 20081128
  12. NIACIN [Concomitant]
     Dosage: UNK
     Dates: start: 20081127
  13. FLAXSEED OIL [Concomitant]
     Dosage: UNK
     Dates: start: 20080929
  14. FLAXSEED OIL [Concomitant]
     Dosage: UNK
     Dates: start: 20081127
  15. ASPIRIN [Concomitant]
     Dosage: UNK
     Dates: start: 20080929
  16. ASPIRIN [Concomitant]
     Dosage: UNK
     Dates: start: 20081127
  17. GARLIC TABLET [Concomitant]
     Dosage: UNK
     Dates: start: 20081127
  18. LIPITOR [Concomitant]
     Dosage: UNK
     Dates: start: 20080929
  19. LIPITOR [Concomitant]
     Dosage: UNK
     Dates: start: 20081127
  20. GLUCOPHAGE [Concomitant]
     Dosage: UNK
     Dates: start: 20080929
  21. GLUCOPHAGE [Concomitant]
     Dosage: UNK
     Dates: start: 20081125
  22. TREXIMET [Concomitant]
     Dosage: UNK
     Dates: start: 20080929
  23. TREXIMET [Concomitant]
     Dosage: UNK
     Dates: start: 20081125
  24. NIASPAN [Concomitant]
     Dosage: UNK
     Dates: start: 20080929
  25. NIASPAN [Concomitant]
     Dosage: UNK
     Dates: start: 20081125
  26. MINOCIN [Concomitant]
     Dosage: UNK
     Dates: start: 20080929
  27. MINOCIN [Concomitant]
     Dosage: UNK
     Dates: start: 20081125
  28. CLINAC BPO [Concomitant]
     Dosage: UNK
     Dates: start: 20080929
  29. CLINAC BPO [Concomitant]
     Dosage: UNK
     Dates: start: 20081125
  30. DIFFERIN [Concomitant]
     Dosage: UNK
     Dates: start: 20080929
  31. DIFFERIN [Concomitant]
     Dosage: UNK
     Dates: start: 20091125
  32. ADVIL MIGRAINE [Concomitant]
     Dosage: UNK
     Dates: start: 20080929
  33. ADVIL MIGRAINE [Concomitant]
     Dosage: UNK
     Dates: start: 20081125
  34. GARLIC [Concomitant]
     Dosage: UNK
     Dates: start: 20080929
  35. GARLIC [Concomitant]
     Dosage: UNK
     Dates: start: 20081125
  36. ALEVE [Concomitant]
     Dosage: UNK
     Dates: start: 20080929
  37. ALEVE [Concomitant]
     Dosage: UNK
     Dates: start: 20081125
  38. MINOCYCLINE [Concomitant]

REACTIONS (2)
  - Deep vein thrombosis [Recovered/Resolved]
  - Thrombophlebitis superficial [None]
